FAERS Safety Report 12653697 (Version 2)
Quarter: 2016Q3

REPORT INFORMATION
  Report Type: Report from Study
  Country: FR (occurrence: FR)
  Receive Date: 20160816
  Receipt Date: 20160916
  Transmission Date: 20161109
  Serious: Yes (Other)
  Sender: FDA-Public Use
  Company Number: FR-ROCHE-1813068

PATIENT
  Age: 77 Year
  Sex: Male

DRUGS (5)
  1. INDOCOLLYRE [Concomitant]
     Active Substance: INDOMETHACIN
     Indication: POSTOPERATIVE CARE
     Dosage: 1 DRP, TID
     Route: 065
     Dates: start: 20150224
  2. CHIBRO CADRON [Concomitant]
     Active Substance: DEXAMETHASONE SODIUM PHOSPHATE\NEOMYCIN SULFATE
     Indication: POSTOPERATIVE CARE
     Dosage: 1 DRP, QID
     Route: 065
     Dates: start: 20150224
  3. MYDRIATICUM [Concomitant]
     Active Substance: TROPICAMIDE
     Indication: POSTOPERATIVE CARE
     Dosage: 1 DRP, BID
     Route: 065
     Dates: start: 20150224, end: 20150227
  4. RANIBIZUMAB [Suspect]
     Active Substance: RANIBIZUMAB
     Indication: VISUAL IMPAIRMENT
     Dosage: LEFT EYE
     Route: 050
     Dates: start: 20150428
  5. RANIBIZUMAB [Suspect]
     Active Substance: RANIBIZUMAB
     Indication: DIABETIC RETINAL OEDEMA

REACTIONS (4)
  - Ocular hypertension [Recovered/Resolved]
  - Glaucoma [Recovered/Resolved]
  - Conjunctivitis [Recovered/Resolved]
  - Drug ineffective [Unknown]

NARRATIVE: CASE EVENT DATE: 20150429
